FAERS Safety Report 9318116 (Version 1)
Quarter: 2013Q2

REPORT INFORMATION
  Report Type: Spontaneous
  Country: US (occurrence: None)
  Receive Date: 20130529
  Receipt Date: 20130529
  Transmission Date: 20140414
  Serious: Yes (Disabling, Other)
  Sender: FDA-Public Use
  Company Number: None

PATIENT
  Sex: Male
  Weight: 98.88 kg

DRUGS (1)
  1. SINGULAR [Suspect]
     Dosage: 1 TABLET
     Route: 048
     Dates: start: 200902

REACTIONS (1)
  - Skin discolouration [None]
